FAERS Safety Report 7208926-0 (Version None)
Quarter: 2011Q1

REPORT INFORMATION
  Report Type: 
  Country: None (occurrence: None)
  Receive Date: 20110104
  Receipt Date: 20101222
  Transmission Date: 20110831
  Serious: Yes (Hospitalization)
  Sender: FDA-Public Use
  Company Number: FR-WATSON-2010-16625

PATIENT
  Age: 34 Year
  Sex: Male

DRUGS (6)
  1. CYCLOPHOSPHAMIDE [Suspect]
     Indication: PROPHYLAXIS AGAINST TRANSPLANT REJECTION
     Dosage: 170 MG, BID
  2. COLCHICINE [Suspect]
     Indication: GOUTY ARTHRITIS
     Dosage: 1 MG, DAILY X 6 DAYS
  3. AZITHROMYCIN [Suspect]
     Indication: BRONCHIOLITIS
     Dosage: 250 MG, DAILY
  4. COLCHICINE [Suspect]
     Dosage: 1 MG BID, ON THE 2ND AND 3RD DAY
  5. COLCHICINE [Suspect]
     Dosage: 1 MG TID, ON THE 1ST DAY
  6. PRAVASTATIN SODIUM [Suspect]
     Indication: PRODUCT USED FOR UNKNOWN INDICATION
     Dosage: 20 MG, DAILY

REACTIONS (7)
  - RHABDOMYOLYSIS [None]
  - DRUG INTERACTION [None]
  - LEFT VENTRICULAR FAILURE [None]
  - ACUTE RESPIRATORY FAILURE [None]
  - ABDOMINAL DISCOMFORT [None]
  - RENAL FAILURE [None]
  - TOXICITY TO VARIOUS AGENTS [None]
